FAERS Safety Report 24076065 (Version 2)
Quarter: 2024Q3

REPORT INFORMATION
  Report Type: Report from Study
  Country: US (occurrence: US)
  Receive Date: 20240710
  Receipt Date: 20240811
  Transmission Date: 20241017
  Serious: Yes (Other)
  Sender: ABBVIE
  Company Number: US-ABBVIE-5831974

PATIENT
  Sex: Female

DRUGS (3)
  1. SKYRIZI [Suspect]
     Active Substance: RISANKIZUMAB-RZAA
     Indication: Crohn^s disease
     Dosage: LAST ADMIN DATE- 2024
     Route: 058
     Dates: start: 202402
  2. SKYRIZI [Suspect]
     Active Substance: RISANKIZUMAB-RZAA
     Route: 058
     Dates: start: 20231214
  3. SKYRIZI [Suspect]
     Active Substance: RISANKIZUMAB-RZAA
     Dosage: LAST ADMIN DATE- 2024
     Route: 058
     Dates: start: 20240101

REACTIONS (3)
  - Intestinal stenosis [Recovering/Resolving]
  - Drug ineffective [Unknown]
  - Crohn^s disease [Not Recovered/Not Resolved]
